FAERS Safety Report 13911450 (Version 1)
Quarter: 2017Q3

REPORT INFORMATION
  Report Type: Spontaneous
  Country: DE (occurrence: DE)
  Receive Date: 20170828
  Receipt Date: 20170828
  Transmission Date: 20171127
  Serious: Yes (Death, Life-Threatening, Other)
  Sender: FDA-Public Use
  Company Number: DE-ASTRAZENECA-2017SE87613

PATIENT
  Sex: Female

DRUGS (18)
  1. QUETIAPINE. [Suspect]
     Active Substance: QUETIAPINE
     Indication: SLEEP DISORDER
     Route: 048
  2. MIRTAZAPINE. [Suspect]
     Active Substance: MIRTAZAPINE
     Indication: SLEEP DISORDER
     Route: 048
  3. QUETIAPINE. [Suspect]
     Active Substance: QUETIAPINE
     Indication: SLEEP DISORDER
     Dosage: 29 X QUETIAPINE RETARD 300 MG TABLETS
     Route: 048
  4. MIRTAZAPINE. [Suspect]
     Active Substance: MIRTAZAPINE
     Indication: DEPRESSION
     Dosage: 23.5 X MIRTAZAPIN 30 MG TABLETS
     Route: 048
  5. MIRTAZAPINE. [Suspect]
     Active Substance: MIRTAZAPINE
     Indication: INTENTIONAL SELF-INJURY
     Dosage: 23.5 X MIRTAZAPIN 30 MG TABLETS
     Route: 048
  6. QUETIAPINE. [Suspect]
     Active Substance: QUETIAPINE
     Indication: DEPRESSION
     Dosage: 29 X QUETIAPINE RETARD 300 MG TABLETS
     Route: 048
  7. QUETIAPINE. [Suspect]
     Active Substance: QUETIAPINE
     Indication: INTENTIONAL SELF-INJURY
     Dosage: 29 X QUETIAPINE RETARD 300 MG TABLETS
     Route: 048
  8. MIRTAZAPINE. [Suspect]
     Active Substance: MIRTAZAPINE
     Indication: DEPRESSION
     Route: 048
  9. QUETIAPINE. [Suspect]
     Active Substance: QUETIAPINE
     Indication: INTENTIONAL SELF-INJURY
     Route: 048
  10. QUETIAPINE. [Suspect]
     Active Substance: QUETIAPINE
     Indication: INTENTIONAL SELF-INJURY
     Dosage: 29 X QUETIAPINE RETARD 200 MG TABLETS
     Route: 048
  11. IBUPROFEN. [Suspect]
     Active Substance: IBUPROFEN
     Dosage: 5 X IBUPROFEN 400 MG TABLETS
     Route: 048
  12. SINUPRET FORTE [Suspect]
     Active Substance: HERBALS
     Dosage: 5 X SINUPRET FORTE TABLETS
     Route: 048
  13. QUETIAPINE. [Suspect]
     Active Substance: QUETIAPINE
     Indication: DEPRESSION
     Route: 048
  14. IBUPROFEN. [Suspect]
     Active Substance: IBUPROFEN
     Dosage: 5 X IBUPROFEN 600 MG TABLETS
     Route: 048
  15. MIRTAZAPINE. [Suspect]
     Active Substance: MIRTAZAPINE
     Indication: SLEEP DISORDER
     Dosage: 23.5 X MIRTAZAPIN 30 MG TABLETS
     Route: 048
  16. QUETIAPINE. [Suspect]
     Active Substance: QUETIAPINE
     Indication: DEPRESSION
     Dosage: 29 X QUETIAPINE RETARD 200 MG TABLETS
     Route: 048
  17. QUETIAPINE. [Suspect]
     Active Substance: QUETIAPINE
     Indication: SLEEP DISORDER
     Dosage: 29 X QUETIAPINE RETARD 200 MG TABLETS
     Route: 048
  18. MIRTAZAPINE. [Suspect]
     Active Substance: MIRTAZAPINE
     Indication: INTENTIONAL SELF-INJURY
     Route: 048

REACTIONS (6)
  - Muscle spasms [Unknown]
  - Hypotension [Unknown]
  - Acute respiratory distress syndrome [Unknown]
  - Loss of consciousness [Unknown]
  - Hypoxia [Unknown]
  - Completed suicide [Fatal]
